FAERS Safety Report 9422664 (Version 1)
Quarter: 2013Q3

REPORT INFORMATION
  Report Type: Spontaneous
  Country: US (occurrence: None)
  Receive Date: 20130724
  Receipt Date: 20130724
  Transmission Date: 20140515
  Serious: Yes (Other)
  Sender: FDA-Public Use
  Company Number: 2013AP006658

PATIENT
  Sex: Female

DRUGS (49)
  1. TRAZODONE HYDROCHLORIDE [Suspect]
  2. CODEINE [Concomitant]
  3. DARVON [Concomitant]
  4. PERCPDAM /00018802/ [Concomitant]
  5. DERMPL /00090001/ [Concomitant]
  6. TALMIN /00052101/ [Concomitant]
  7. VICODIN [Concomitant]
  8. LODINE [Concomitant]
  9. ZOLFT [Concomitant]
  10. ORUDIS [Concomitant]
  11. CELEXBREX [Concomitant]
  12. ATHROTEC [Concomitant]
  13. BENZOIN [Concomitant]
  14. LEVOXYL [Concomitant]
  15. SYNVISC [Concomitant]
  16. METHADONE [Concomitant]
  17. ULTRAM [Concomitant]
  18. CELEXA / 00582602/ [Concomitant]
  19. CECLOR [Concomitant]
  20. ERYTHROMCIN [Concomitant]
  21. RELAFEN [Concomitant]
  22. LYRICA [Concomitant]
  23. SINGULAIR [Concomitant]
  24. SIMVASTATIN [Concomitant]
  25. NEURONTIN [Concomitant]
  26. LEOVTHYROXINE [Concomitant]
  27. PROPRANOLOL [Concomitant]
  28. FLONASE [Concomitant]
  29. MOBIC [Concomitant]
  30. DURAGESOC /00070401/ [Concomitant]
  31. ADAVIR [Concomitant]
  32. SPIRIVIR [Concomitant]
  33. VENTOLIN HFA [Concomitant]
  34. CLOBETASOL PROPIONATE [Concomitant]
  35. PATANOL [Concomitant]
  36. ERYTHROMYCIN [Concomitant]
  37. RELPAX [Concomitant]
  38. DIMENTHYDRINATE [Concomitant]
  39. ELIDEL [Concomitant]
  40. ASPIRIN [Concomitant]
  41. VITAMIN E /00111501 [Concomitant]
  42. MULTIVITAMINS WITH MINERALS /900039801/ [Concomitant]
  43. VITAMIN  B NOS [Concomitant]
  44. MAGNESUIM [Concomitant]
  45. VITAMIN D /00107901/ [Concomitant]
  46. CODEINE [Concomitant]
  47. METHODONE [Concomitant]
  48. LYRICA [Concomitant]
  49. AMITRIPTYLINE [Concomitant]

REACTIONS (3)
  - Motor dysfunction [None]
  - Cognitive disorder [None]
  - Aphasia [None]
